FAERS Safety Report 4749850-2 (Version None)
Quarter: 2005Q3

REPORT INFORMATION
  Report Type: 
  Country: None (occurrence: None)
  Receive Date: 20050822
  Receipt Date: 20050808
  Transmission Date: 20060218
  Serious: Yes (Life-Threatening, Other)
  Sender: FDA-Public Use
  Company Number: 200517087GDDC

PATIENT
  Age: 82 Year
  Sex: Male
  Weight: 78.6 kg

DRUGS (9)
  1. TAXOTERE [Suspect]
     Indication: PROSTATE CANCER
     Route: 042
  2. CODE UNBROKEN [Suspect]
     Indication: PROSTATE CANCER
  3. DEXAMETHASONE [Concomitant]
     Dosage: DOSE: 4 MG DAY BEFORE CHEMO AND DAY OF CHEMO
     Route: 048
  4. ACTOS [Concomitant]
  5. GLYBURIDE [Concomitant]
  6. NORVASC [Concomitant]
  7. NITROSTAT [Concomitant]
  8. COREG [Concomitant]
  9. LASIX [Concomitant]

REACTIONS (8)
  - BLOOD CALCIUM INCREASED [None]
  - BLOOD CREATININE INCREASED [None]
  - CATARACT [None]
  - FATIGUE [None]
  - HYPOGLYCAEMIA [None]
  - OEDEMA [None]
  - ONYCHALGIA [None]
  - ONYCHOMADESIS [None]
